FAERS Safety Report 8956478 (Version 1)
Quarter: 2012Q4

REPORT INFORMATION
  Report Type: 
  Country: US (occurrence: US)
  Receive Date: 20121210
  Receipt Date: 20121210
  Transmission Date: 20130627
  Serious: Yes (Other)
  Sender: FDA-Public Use
  Company Number: US-PFIZER INC-2012309968

PATIENT
  Age: 52 Year
  Sex: Male

DRUGS (2)
  1. ADVIL [Suspect]
     Indication: ARTHRITIC PAINS
     Dosage: 800 mg, 2x/day
     Route: 048
  2. HYDROCHLOROTHIAZIDE [Concomitant]
     Indication: FLUID RETENTION
     Dosage: 15 mg, daily

REACTIONS (4)
  - Autoimmune hepatitis [Unknown]
  - Hepatic failure [Unknown]
  - Drug ineffective [Unknown]
  - Arthralgia [Recovering/Resolving]
